FAERS Safety Report 4554807-0 (Version None)
Quarter: 2005Q1

REPORT INFORMATION
  Report Type: 
  Country: None (occurrence: None)
  Receive Date: 20041227
  Receipt Date: 20040519
  Transmission Date: 20050727
  Serious: Yes (Hospitalization, Other)
  Sender: FDA-Public Use
  Company Number: 2004-0007080

PATIENT
  Age: 53 Year
  Sex: Female

DRUGS (2)
  1. TENOFOVIR DISOPROXIL FUMARATE (TENOFOVIR DISOPROXIL FUMARATE) [Suspect]
     Dosage: 300 MG, ORAL
     Route: 048
  2. KALETRA [Suspect]

REACTIONS (1)
  - RENAL FAILURE ACUTE [None]
